FAERS Safety Report 13272904 (Version 1)
Quarter: 2017Q1

REPORT INFORMATION
  Report Type: Spontaneous
  Country: US (occurrence: US)
  Receive Date: 20170227
  Receipt Date: 20170227
  Transmission Date: 20170428
  Serious: No
  Sender: FDA-Public Use
  Company Number: None

PATIENT
  Age: 82 Year
  Sex: Female
  Weight: 67.19 kg

DRUGS (9)
  1. LORATADINE. [Concomitant]
     Active Substance: LORATADINE
  2. LEVOTHYROXINE. [Concomitant]
     Active Substance: LEVOTHYROXINE
  3. CIPROFLOXACIN. [Suspect]
     Active Substance: CIPROFLOXACIN
     Indication: CYSTITIS
     Dosage: 14 DF 1 X 2 DAY, MOUTH
     Route: 048
     Dates: start: 20170131, end: 201702
  4. LOW DOSE ASPERIN [Concomitant]
  5. MOVE FREE JOINT [Concomitant]
  6. LABETALOL [Concomitant]
     Active Substance: LABETALOL\LABETALOL HYDROCHLORIDE
  7. SALON PLUS PATCHES [Concomitant]
  8. OMEPRAZOLE. [Concomitant]
     Active Substance: OMEPRAZOLE
  9. MULTI VIT. [Concomitant]

REACTIONS (6)
  - Myalgia [None]
  - Pain in extremity [None]
  - Pain [None]
  - Feeling abnormal [None]
  - Dizziness [None]
  - Arthralgia [None]

NARRATIVE: CASE EVENT DATE: 20170203
